FAERS Safety Report 4977973-1 (Version None)
Quarter: 2006Q2

REPORT INFORMATION
  Report Type: 
  Country: None (occurrence: None)
  Receive Date: 20060420
  Receipt Date: 20050419
  Transmission Date: 20061013
  Serious: Yes (Death, Hospitalization)
  Sender: FDA-Public Use
  Company Number: US-MERCK-0504USA03828

PATIENT
  Age: 88 Year
  Sex: Female
  Weight: 41 kg

DRUGS (3)
  1. VIOXX [Suspect]
     Indication: ARTHRITIS
     Route: 048
     Dates: start: 20010101, end: 20031028
  2. TYLENOL (CAPLET) [Concomitant]
     Route: 065
  3. SYNTHROID [Concomitant]
     Route: 048

REACTIONS (21)
  - ACUTE MYOCARDIAL INFARCTION [None]
  - ANAEMIA [None]
  - ANOREXIA [None]
  - CACHEXIA [None]
  - CARDIAC FAILURE [None]
  - CARDIAC FAILURE CONGESTIVE [None]
  - CAROTID ARTERY DISEASE [None]
  - DYSPNOEA [None]
  - FLUID OVERLOAD [None]
  - GAIT DISTURBANCE [None]
  - GANGRENE [None]
  - HYPERKALAEMIA [None]
  - HYPERTENSION [None]
  - LEUKOCYTOSIS [None]
  - MENTAL DISORDER DUE TO A GENERAL MEDICAL CONDITION [None]
  - MENTAL STATUS CHANGES [None]
  - OSTEOPOROSIS [None]
  - PERIPHERAL ISCHAEMIA [None]
  - PERIPHERAL VASCULAR DISORDER [None]
  - RESPIRATORY FAILURE [None]
  - ULCER [None]
